FAERS Safety Report 8583617-2 (Version None)
Quarter: 2012Q3

REPORT INFORMATION
  Report Type: 
  Country: None (occurrence: None)
  Receive Date: 20120809
  Receipt Date: 20120216
  Transmission Date: 20120928
  Serious: Yes (Hospitalization, Other)
  Sender: FDA-Public Use
  Company Number: US-009507513-2011SP044702

PATIENT
  Sex: Female
  Weight: 58.97 kg

DRUGS (4)
  1. NUVARING [Suspect]
     Dates: start: 20090805, end: 20090925
  2. LEVOTHYROXINE SODIUM [Concomitant]
     Indication: HYPOTHYROIDISM
     Dates: start: 20030101
  3. NUVARING [Suspect]
     Indication: CONTRACEPTION
     Dates: start: 20090805, end: 20090925
  4. MAXALT [Concomitant]
     Indication: MIGRAINE
     Dates: start: 20080101

REACTIONS (6)
  - HYPERCOAGULATION [None]
  - MESENTERIC VEIN THROMBOSIS [None]
  - OVARIAN CYST [None]
  - EMOTIONAL DISORDER [None]
  - IRON DEFICIENCY ANAEMIA [None]
  - MENTAL DISORDER [None]
